FAERS Safety Report 10614355 (Version 3)
Quarter: 2014Q4

REPORT INFORMATION
  Report Type: Report from Study
  Country: NL (occurrence: NL)
  Receive Date: 20141128
  Receipt Date: 20141222
  Transmission Date: 20150529
  Serious: Yes (Life-Threatening)
  Sender: FDA-Public Use
  Company Number: PHHY2014NL153782

PATIENT
  Age: 72 Year
  Sex: Female

DRUGS (1)
  1. SANDOSTATIN LAR DEPOT [Suspect]
     Active Substance: OCTREOTIDE ACETATE
     Indication: NEUROENDOCRINE TUMOUR
     Dosage: 30 MG/2 ML,1X PER 3 WEEKS
     Route: 030

REACTIONS (3)
  - Heart valve incompetence [Unknown]
  - Hormone level abnormal [Unknown]
  - Metastases to liver [Unknown]

NARRATIVE: CASE EVENT DATE: 20141117
